FAERS Safety Report 17564078 (Version 17)
Quarter: 2025Q2

REPORT INFORMATION
  Report Type: Report from Study
  Country: US (occurrence: US)
  Receive Date: 20200320
  Receipt Date: 20250505
  Transmission Date: 20250717
  Serious: Yes (Hospitalization, Other)
  Sender: TAKEDA
  Company Number: US-SHIRE-US202010397

PATIENT
  Sex: Male
  Weight: 80 kg

DRUGS (47)
  1. HUMAN IMMUNOGLOBULIN G [Suspect]
     Active Substance: HUMAN IMMUNOGLOBULIN G
     Indication: Combined immunodeficiency
     Dosage: 10 GRAM, QD
     Dates: start: 20170512
  2. HUMAN IMMUNOGLOBULIN G [Suspect]
     Active Substance: HUMAN IMMUNOGLOBULIN G
     Indication: Primary immunodeficiency syndrome
     Dosage: 10 GRAM, 1/WEEK
     Dates: start: 20170512
  3. HUMAN IMMUNOGLOBULIN G [Suspect]
     Active Substance: HUMAN IMMUNOGLOBULIN G
     Indication: Immune system disorder
     Dosage: 10 GRAM, 1/WEEK
     Dates: start: 20210304
  4. HUMAN IMMUNOGLOBULIN G [Suspect]
     Active Substance: HUMAN IMMUNOGLOBULIN G
     Indication: Hypergammaglobulinaemia
     Dosage: 16 GRAM, Q2WEEKS
  5. ACETAMINOPHEN [Concomitant]
     Active Substance: ACETAMINOPHEN
  6. DIPHENHYDRAMINE [Concomitant]
     Active Substance: DIPHENHYDRAMINE
  7. LIDOCAINE [Concomitant]
     Active Substance: LIDOCAINE
  8. EPINEPHRINE [Concomitant]
     Active Substance: EPINEPHRINE
  9. HYZAAR [Concomitant]
     Active Substance: HYDROCHLOROTHIAZIDE\LOSARTAN POTASSIUM
  10. SINGULAIR [Concomitant]
     Active Substance: MONTELUKAST SODIUM
  11. NIASPAN [Concomitant]
     Active Substance: NIACIN
  12. SIMVASTATIN [Concomitant]
     Active Substance: SIMVASTATIN
  13. ALBUTEROL [Concomitant]
     Active Substance: ALBUTEROL
  14. ARNUITY ELLIPTA [Concomitant]
     Active Substance: FLUTICASONE FUROATE
  15. BUPROPION [Concomitant]
     Active Substance: BUPROPION
  16. ALBUTEROL SULFATE [Concomitant]
     Active Substance: ALBUTEROL SULFATE
  17. FLOMAX [Concomitant]
     Active Substance: TAMSULOSIN HYDROCHLORIDE
  18. ZANTAC [Concomitant]
     Active Substance: RANITIDINE HYDROCHLORIDE
  19. LEVETIRACETAM [Concomitant]
     Active Substance: LEVETIRACETAM
  20. ACTOS [Concomitant]
     Active Substance: PIOGLITAZONE HYDROCHLORIDE
  21. NIASPAN ER [Concomitant]
     Active Substance: NIACIN
  22. EPIPEN [Concomitant]
     Active Substance: EPINEPHRINE
  23. FLONASE [Concomitant]
     Active Substance: FLUTICASONE PROPIONATE
  24. FLUTICASONE PROPIONATE [Concomitant]
     Active Substance: FLUTICASONE PROPIONATE
  25. ZYRTEC [Concomitant]
     Active Substance: CETIRIZINE HYDROCHLORIDE
  26. SULFAMETHOXAZOLE AND TRIMETHOPRIM [Concomitant]
     Active Substance: SULFAMETHOXAZOLE\TRIMETHOPRIM
  27. SYMBICORT [Concomitant]
     Active Substance: BUDESONIDE\FORMOTEROL FUMARATE DIHYDRATE
  28. TRAZODONE HCL [Concomitant]
     Active Substance: TRAZODONE HYDROCHLORIDE
  29. ATORVASTATIN CALCIUM [Concomitant]
     Active Substance: ATORVASTATIN CALCIUM
  30. SPIRIVA [Concomitant]
     Active Substance: TIOTROPIUM BROMIDE MONOHYDRATE
  31. OXYCODONE AND ACETAMINOPHEN [Concomitant]
     Active Substance: ACETAMINOPHEN\OXYCODONE HYDROCHLORIDE
  32. CELEBREX [Concomitant]
     Active Substance: CELECOXIB
  33. NITROGLYCERIN [Concomitant]
     Active Substance: NITROGLYCERIN
  34. BROMPHENIRAMINE [Concomitant]
     Active Substance: BROMPHENIRAMINE
  35. FISH OIL [Concomitant]
     Active Substance: FISH OIL
  36. CETIRIZINE HCL [Concomitant]
     Active Substance: CETIRIZINE HYDROCHLORIDE
  37. CEPHALEXIN [Concomitant]
     Active Substance: CEPHALEXIN
  38. PEPCID AC [Concomitant]
     Active Substance: FAMOTIDINE
  39. LOSARTAN POTASSIUM [Concomitant]
     Active Substance: LOSARTAN POTASSIUM
  40. AZELASTINE. [Concomitant]
     Active Substance: AZELASTINE HYDROCHLORIDE
  41. ALBUTEROL SULFATE [Concomitant]
     Active Substance: ALBUTEROL SULFATE
  42. SOMA [Concomitant]
     Active Substance: CARISOPRODOL
  43. OXYCODONE HYDROCHLORIDE [Concomitant]
     Active Substance: OXYCODONE HYDROCHLORIDE
  44. PREDNISONE [Concomitant]
     Active Substance: PREDNISONE
  45. AMOXICILLIN AND CLAVULANATE POTASSIUM [Concomitant]
     Active Substance: AMOXICILLIN\CLAVULANATE POTASSIUM
  46. MYRBETRIQ [Concomitant]
     Active Substance: MIRABEGRON
  47. DIPHENHYDRAMINE HYDROCHLORIDE [Concomitant]
     Active Substance: DIPHENHYDRAMINE HYDROCHLORIDE

REACTIONS (22)
  - Heart valve incompetence [Unknown]
  - Cardiac disorder [Unknown]
  - Spinal cord injury lumbar [Unknown]
  - Hypoaesthesia [Unknown]
  - Weight decreased [Unknown]
  - Urticaria [Unknown]
  - Product dose omission issue [Unknown]
  - Seasonal allergy [Unknown]
  - Scar [Unknown]
  - Eye disorder [Unknown]
  - Infusion related reaction [Unknown]
  - Musculoskeletal discomfort [Not Recovered/Not Resolved]
  - Back disorder [Not Recovered/Not Resolved]
  - Mobility decreased [Not Recovered/Not Resolved]
  - Gait disturbance [Unknown]
  - Infusion site discharge [Recovering/Resolving]
  - Sinusitis [Recovering/Resolving]
  - Muscle spasms [Unknown]
  - Cough [Recovering/Resolving]
  - Pain [Unknown]
  - Infusion site pain [Unknown]
  - Fall [Unknown]
